FAERS Safety Report 9463689 (Version 8)
Quarter: 2014Q2

REPORT INFORMATION
  Report Type: Report from Study
  Country: US (occurrence: US)
  Receive Date: 20130819
  Receipt Date: 20140615
  Transmission Date: 20141212
  Serious: Yes (Hospitalization, Other)
  Sender: FDA-Public Use
  Company Number: PHEH2013US017393

PATIENT
  Age: 42 Year
  Sex: Male

DRUGS (3)
  1. EXTAVIA [Suspect]
     Indication: MULTIPLE SCLEROSIS
     Dosage: 0.25 MG (1 ML), QOD
     Route: 058
     Dates: start: 201307
  2. EXTAVIA [Suspect]
     Dosage: 0.3 MG, QOD
     Route: 058
  3. EXTAVIA [Suspect]
     Dosage: 0.25 MG, QOD
     Route: 058

REACTIONS (19)
  - Abasia [Not Recovered/Not Resolved]
  - Paraparesis [Unknown]
  - Muscular weakness [Not Recovered/Not Resolved]
  - Hypoaesthesia [Recovering/Resolving]
  - Multiple sclerosis relapse [Recovering/Resolving]
  - Intervertebral disc protrusion [Not Recovered/Not Resolved]
  - Central nervous system lesion [Unknown]
  - Muscle tightness [Not Recovered/Not Resolved]
  - Fall [Unknown]
  - Back disorder [Not Recovered/Not Resolved]
  - Limb discomfort [Unknown]
  - Balance disorder [Not Recovered/Not Resolved]
  - Gastric disorder [Unknown]
  - Dysstasia [Not Recovered/Not Resolved]
  - Photophobia [Unknown]
  - Influenza like illness [Recovered/Resolved]
  - Fatigue [Not Recovered/Not Resolved]
  - Myalgia [Not Recovered/Not Resolved]
  - Asthenia [Not Recovered/Not Resolved]
